FAERS Safety Report 17991079 (Version 1)
Quarter: 2020Q3

REPORT INFORMATION
  Report Type: Report from Study
  Country: US (occurrence: US)
  Receive Date: 20200707
  Receipt Date: 20200707
  Transmission Date: 20201103
  Serious: Yes (Other)
  Sender: FDA-Public Use
  Company Number: US-PFIZER INC-2020230874

PATIENT
  Age: 58 Year
  Sex: Female

DRUGS (1)
  1. IBRANCE [Suspect]
     Active Substance: PALBOCICLIB
     Indication: BREAST CANCER
     Dosage: 125 MG, CYCLIC (ONCE DAILY, CYCLE IS 21 OUT OF 28 DAYS)
     Route: 048
     Dates: start: 20200511

REACTIONS (9)
  - Alopecia [Unknown]
  - Red blood cell count decreased [Unknown]
  - Contusion [Recovered/Resolved]
  - White blood cell count decreased [Unknown]
  - Nasal dryness [Not Recovered/Not Resolved]
  - Myelosuppression [Recovering/Resolving]
  - Nasal discomfort [Unknown]
  - Fatigue [Not Recovered/Not Resolved]
  - Platelet count decreased [Unknown]

NARRATIVE: CASE EVENT DATE: 2020
